FAERS Safety Report 9231080 (Version 4)
Quarter: 2013Q2

REPORT INFORMATION
  Report Type: Report from Study
  Country: ES (occurrence: ES)
  Receive Date: 20130415
  Receipt Date: 20130628
  Transmission Date: 20140414
  Serious: Yes (Hospitalization)
  Sender: FDA-Public Use
  Company Number: PHHO2013ES004285

PATIENT
  Age: 73 Year
  Sex: Male
  Weight: 87.5 kg

DRUGS (8)
  1. ENALAPRIL HCT [Suspect]
     Indication: HYPERTENSION
     Dosage: 1 DF (20/125 MG), QD
     Dates: end: 20130325
  2. FUROSEMIDE [Suspect]
     Indication: OEDEMA PERIPHERAL
     Dosage: 40 MG, QD
     Dates: start: 20130314
  3. METFORMIN [Suspect]
     Indication: DIABETES MELLITUS
     Dosage: 850 MG, BID
  4. LGX818 [Suspect]
     Indication: METASTATIC MALIGNANT MELANOMA
     Dosage: 450 MG, QD
     Route: 048
     Dates: start: 20130320, end: 20130320
  5. OMEPRAZOLE [Concomitant]
     Indication: PROPHYLAXIS
     Dosage: 20 MG, QD
  6. ACETYLSALICYLIC ACID [Concomitant]
     Indication: LACUNAR INFARCTION
     Dosage: 300 MG, QD
  7. MORPHINE [Concomitant]
     Indication: PAIN IN EXTREMITY
     Dosage: 10 MG, BID
     Dates: end: 20130402
  8. MORPHINE [Concomitant]
     Dosage: 10 MG, SP
     Dates: end: 20130402

REACTIONS (1)
  - Renal failure acute [Recovered/Resolved]
